FAERS Safety Report 5364264-2 (Version None)
Quarter: 2007Q2

REPORT INFORMATION
  Report Type: 
  Country: None (occurrence: None)
  Receive Date: 20070620
  Receipt Date: 20070605
  Transmission Date: 20071010
  Serious: Yes (Hospitalization, Disabling)
  Sender: FDA-Public Use
  Company Number: US-GENENTECH-241615

PATIENT
  Sex: Male

DRUGS (6)
  1. BEVACIZUMAB [Suspect]
     Indication: NON-SMALL CELL LUNG CANCER
     Dosage: 15 MG/KG, Q3W
     Route: 042
     Dates: start: 20070222
  2. CARBOPLATIN [Suspect]
     Indication: NON-SMALL CELL LUNG CANCER
     Dosage: 6 AUC, UNK
     Route: 042
     Dates: start: 20070222
  3. PACLITAXEL [Suspect]
     Indication: NON-SMALL CELL LUNG CANCER
     Dosage: 200 MG/M2, UNK
     Route: 042
     Dates: start: 20070222
  4. FLOMAX [Concomitant]
     Indication: DRUG USE FOR UNKNOWN INDICATION
  5. DILANTIN [Concomitant]
     Indication: DRUG USE FOR UNKNOWN INDICATION
  6. VICODIN [Concomitant]
     Indication: DRUG USE FOR UNKNOWN INDICATION

REACTIONS (1)
  - HYPOMAGNESAEMIA [None]
